FAERS Safety Report 10741714 (Version 2)
Quarter: 2016Q4

REPORT INFORMATION
  Report Type: Spontaneous
  Country: US (occurrence: US)
  Receive Date: 20150127
  Receipt Date: 20161003
  Transmission Date: 20170206
  Serious: Yes (Other)
  Sender: FDA-Public Use
  Company Number: US-BAYER-2015-007399

PATIENT
  Age: 72 Year
  Sex: Female

DRUGS (17)
  1. ADVAIR HFA [Concomitant]
     Active Substance: FLUTICASONE PROPIONATE\SALMETEROL XINAFOATE
     Dosage: UNK
  2. PRAVASTATIN. [Concomitant]
     Active Substance: PRAVASTATIN
     Dosage: UNK
  3. ONDANSETRON [Concomitant]
     Active Substance: ONDANSETRON
     Dosage: UNK
  4. MUCINEX [Concomitant]
     Active Substance: GUAIFENESIN
     Dosage: UNK
  5. ADVAIR DISKUS [Concomitant]
     Active Substance: FLUTICASONE PROPIONATE\SALMETEROL XINAFOATE
     Dosage: UNK
  6. AVELOX [Suspect]
     Active Substance: MOXIFLOXACIN HYDROCHLORIDE
     Indication: BRONCHITIS
     Dosage: 400 MG, UNK
  7. LEVAQUIN [Concomitant]
     Active Substance: LEVOFLOXACIN
     Dosage: UNK
  8. ASPIRIN. [Concomitant]
     Active Substance: ASPIRIN
     Dosage: UNK
  9. OCULAR LUBRICANT [HYPROMELLOSE] [Concomitant]
     Dosage: UNK
  10. KETOROLAC [Concomitant]
     Active Substance: KETOROLAC\KETOROLAC TROMETHAMINE
     Dosage: UNK
  11. PREDNISONE. [Concomitant]
     Active Substance: PREDNISONE
     Dosage: UNK
  12. FLUTICASONE [Concomitant]
     Active Substance: FLUTICASONE\FLUTICASONE PROPIONATE
     Dosage: UNK
  13. DOCUSATE [Concomitant]
     Active Substance: DOCUSATE
     Dosage: UNK
  14. ACETAMINOPHEN. [Concomitant]
     Active Substance: ACETAMINOPHEN
     Dosage: UNK
  15. CEFTRIAXONE. [Concomitant]
     Active Substance: CEFTRIAXONE
     Dosage: UNK
  16. ENOXAPARIN [Concomitant]
     Active Substance: ENOXAPARIN
     Dosage: UNK
  17. AVELOX [Suspect]
     Active Substance: MOXIFLOXACIN HYDROCHLORIDE
     Indication: BRONCHITIS
     Dosage: UNK
     Dates: start: 20130502, end: 20130508

REACTIONS (23)
  - Iris transillumination defect [None]
  - Iridocyclitis [None]
  - Uveitis [None]
  - Anterior chamber inflammation [None]
  - Emotional distress [None]
  - Pigment dispersion syndrome [None]
  - Injury [None]
  - Quality of life decreased [None]
  - Visual impairment [None]
  - Iris hypopigmentation [None]
  - Cataract [None]
  - Glaucoma [None]
  - Ciliary body degeneration [None]
  - Eye pain [None]
  - Pigmentary glaucoma [None]
  - Adverse event [None]
  - Vitritis [None]
  - Eye swelling [None]
  - Ciliary body disorder [None]
  - Photophobia [None]
  - Intraocular pressure test [None]
  - Anhedonia [None]
  - Pain [None]
